FAERS Safety Report 9983485 (Version 8)
Quarter: 2020Q4

REPORT INFORMATION
  Report Type: Report from Study
  Country: US (occurrence: US)
  Receive Date: 20140307
  Receipt Date: 20201106
  Transmission Date: 20210114
  Serious: Yes (Life-Threatening, Hospitalization, Other)
  Sender: FDA-Public Use
  Company Number: US-SA-2014SA016244

PATIENT
  Sex: Female

DRUGS (11)
  1. TOPAMAX [Concomitant]
     Active Substance: TOPIRAMATE
     Indication: HEADACHE
     Dosage: 50 MG,BID
     Dates: start: 2008
  2. CLONIDINE. [Concomitant]
     Active Substance: CLONIDINE
     Indication: HYPERTENSION
     Dosage: .1 MG,BID
     Dates: start: 2010
  3. TERIFLUNOMIDE. [Suspect]
     Active Substance: TERIFLUNOMIDE
     Dosage: 14 MG,QD
     Route: 048
     Dates: start: 20140107, end: 201710
  4. MILNACIPRAN [Concomitant]
     Active Substance: MILNACIPRAN
     Indication: DEPRESSION
     Dosage: 50 MG,BID
     Dates: start: 2012
  5. COPAXONE [Concomitant]
     Active Substance: GLATIRAMER ACETATE
     Dosage: UNK
     Dates: start: 20130901, end: 20140101
  6. WARFARIN [Concomitant]
     Active Substance: WARFARIN
     Dosage: UNK
     Dates: start: 2014
  7. TERIFLUNOMIDE. [Suspect]
     Active Substance: TERIFLUNOMIDE
     Dosage: 14 MG,QD
     Route: 048
     Dates: start: 201710
  8. REQUIP [Concomitant]
     Active Substance: ROPINIROLE HYDROCHLORIDE
     Indication: RESTLESS LEGS SYNDROME
     Dosage: 2 DF,TID
     Dates: start: 2012
  9. MILNACIPRAN [Concomitant]
     Active Substance: MILNACIPRAN
     Indication: ANXIETY
  10. LYRICA [Concomitant]
     Active Substance: PREGABALIN
     Dosage: UNK
  11. TERIFLUNOMIDE. [Suspect]
     Active Substance: TERIFLUNOMIDE
     Indication: MULTIPLE SCLEROSIS
     Dosage: 14 MG,QD
     Route: 048
     Dates: start: 20131213

REACTIONS (16)
  - Abdominal discomfort [Not Recovered/Not Resolved]
  - Pain [Not Recovered/Not Resolved]
  - Decreased appetite [Not Recovered/Not Resolved]
  - Influenza [Unknown]
  - Headache [Not Recovered/Not Resolved]
  - Pulmonary embolism [Recovering/Resolving]
  - Feeding disorder [Not Recovered/Not Resolved]
  - Fall [Unknown]
  - Alopecia [Not Recovered/Not Resolved]
  - Fatigue [Unknown]
  - Injury [Not Recovered/Not Resolved]
  - Seizure [Not Recovered/Not Resolved]
  - Near death experience [Unknown]
  - Contusion [Recovered/Resolved]
  - Nausea [Not Recovered/Not Resolved]
  - Depressed mood [Not Recovered/Not Resolved]

NARRATIVE: CASE EVENT DATE: 2014
